FAERS Safety Report 18093117 (Version 1)
Quarter: 2020Q3

REPORT INFORMATION
  Report Type: Report from Study
  Country: EG (occurrence: EG)
  Receive Date: 20200730
  Receipt Date: 20200730
  Transmission Date: 20201103
  Serious: Yes (Death, Hospitalization, Other)
  Sender: FDA-Public Use
  Company Number: NVSC2020EG212177

PATIENT
  Age: 50 Year
  Sex: Male

DRUGS (1)
  1. ENTRESTO [Suspect]
     Active Substance: SACUBITRIL\VALSARTAN
     Indication: CARDIAC FAILURE
     Dosage: UNK
     Route: 065
     Dates: start: 20190401

REACTIONS (6)
  - Pulmonary oedema [Unknown]
  - Oedema peripheral [Unknown]
  - Cardiac disorder [Unknown]
  - Hypotension [Unknown]
  - Thrombosis [Fatal]
  - Hypoxia [Unknown]

NARRATIVE: CASE EVENT DATE: 20190901
